FAERS Safety Report 11247195 (Version 6)
Quarter: 2016Q2

REPORT INFORMATION
  Report Type: Report from Study
  Country: BR (occurrence: BR)
  Receive Date: 20150708
  Receipt Date: 20160412
  Transmission Date: 20160815
  Serious: Yes (Other)
  Sender: FDA-Public Use
  Company Number: PHHY2014BR145601

PATIENT
  Age: 57 Year
  Sex: Female
  Weight: 68 kg

DRUGS (13)
  1. DEPURA [Suspect]
     Active Substance: CHOLECALCIFEROL
     Indication: HYPOVITAMINOSIS
     Dosage: 5 DRP, QD
     Route: 065
     Dates: start: 2012
  2. TRAMADOL. [Suspect]
     Active Substance: TRAMADOL
     Indication: PAIN
     Dosage: 2 DF, QD
     Route: 065
  3. VELIJA [Suspect]
     Active Substance: DULOXETINE HYDROCHLORIDE
     Indication: ANTIDEPRESSANT THERAPY
     Dosage: 60 MG, UNK
     Route: 065
  4. ACLASTA [Suspect]
     Active Substance: ZOLEDRONIC ACID
     Indication: OSTEITIS DEFORMANS
     Dosage: 5 MG, Q12MO
     Route: 042
     Dates: start: 2006
  5. ACLASTA [Suspect]
     Active Substance: ZOLEDRONIC ACID
     Dosage: 5 MG, Q12MO
     Route: 042
     Dates: start: 2014
  6. RIVOTRIL [Suspect]
     Active Substance: CLONAZEPAM
     Indication: SLEEP DISORDER
     Dosage: 1 DF, QD
     Route: 065
     Dates: start: 2008
  7. LIBIAN 28 [Concomitant]
     Indication: ENDOCRINE DISORDER
     Dosage: 1 DF, QD
     Route: 065
     Dates: start: 2002
  8. OMEPRAZOLE. [Suspect]
     Active Substance: OMEPRAZOLE
     Indication: PRODUCT USED FOR UNKNOWN INDICATION
     Dosage: 1 DF, QD
     Route: 065
  9. VYTORIN [Suspect]
     Active Substance: EZETIMIBE\SIMVASTATIN
     Indication: BLOOD CHOLESTEROL ABNORMAL
     Dosage: 1 DF, QD
     Route: 065
     Dates: start: 2009
  10. GABANEURIN [Suspect]
     Active Substance: GABAPENTIN
     Indication: PRODUCT USED FOR UNKNOWN INDICATION
     Dosage: 2 DF, QD
     Route: 065
  11. DEPURA [Suspect]
     Active Substance: CHOLECALCIFEROL
     Indication: IMMUNE SYSTEM DISORDER
  12. AMYTRIL [Suspect]
     Active Substance: AMITRIPTYLINE HYDROCHLORIDE
     Indication: ANTIDEPRESSANT THERAPY
     Dosage: 2 DF, QD
     Route: 065
  13. LIBIAM [Suspect]
     Active Substance: TIBOLONE
     Indication: PRODUCT USED FOR UNKNOWN INDICATION
     Dosage: 1 DF, QD
     Route: 065

REACTIONS (25)
  - Weight increased [Recovering/Resolving]
  - Malaise [Unknown]
  - Arthritis [Recovering/Resolving]
  - Nausea [Recovering/Resolving]
  - Pain [Recovering/Resolving]
  - Immunodeficiency [Unknown]
  - Osteoarthritis [Recovering/Resolving]
  - Weight decreased [Unknown]
  - Cough [Recovering/Resolving]
  - Peripheral swelling [Unknown]
  - Pyrexia [Recovering/Resolving]
  - Intervertebral disc protrusion [Recovering/Resolving]
  - Fall [Unknown]
  - Injury [Unknown]
  - Arthralgia [Not Recovered/Not Resolved]
  - Exostosis [Recovering/Resolving]
  - Cyst [Recovering/Resolving]
  - Chills [Recovering/Resolving]
  - Pain in extremity [Recovering/Resolving]
  - Back pain [Not Recovered/Not Resolved]
  - Retching [Recovering/Resolving]
  - Inflammation [Unknown]
  - Spinal disorder [Recovering/Resolving]
  - Femoral neck fracture [Recovering/Resolving]
  - Gastritis [Recovering/Resolving]

NARRATIVE: CASE EVENT DATE: 2013
